FAERS Safety Report 23379449 (Version 1)
Quarter: 2024Q1

REPORT INFORMATION
  Report Type: Report from Study
  Country: US (occurrence: US)
  Receive Date: 20240108
  Receipt Date: 20240108
  Transmission Date: 20240410
  Serious: Yes (Other)
  Sender: FDA-Public Use
  Company Number: US-OTSUKA PHARMACEUTICAL NETHERLANDS B.V.-AUR-004957

PATIENT
  Age: 56 Year
  Sex: Female

DRUGS (1)
  1. LUPKYNIS [Suspect]
     Active Substance: VOCLOSPORIN
     Indication: Product used for unknown indication
     Dosage: TAKE 1 CAPSULE IN THE MORNING AND 3 CAPSULES IN THE EVENING
     Dates: start: 20220216

REACTIONS (6)
  - Bradycardia [Unknown]
  - Systemic lupus erythematosus [Unknown]
  - Glomerular filtration rate decreased [Unknown]
  - Urine protein/creatinine ratio abnormal [Recovering/Resolving]
  - Left ventricular dysfunction [Unknown]
  - Hypertension [Recovering/Resolving]

NARRATIVE: CASE EVENT DATE: 20230929
